FAERS Safety Report 14088651 (Version 2)
Quarter: 2018Q2

REPORT INFORMATION
  Report Type: Report from Study
  Country: MX (occurrence: MX)
  Receive Date: 20171013
  Receipt Date: 20180403
  Transmission Date: 20180711
  Serious: Yes (Other)
  Sender: FDA-Public Use
  Company Number: PHHY2017MX149516

PATIENT
  Sex: Male

DRUGS (10)
  1. GALVUS MET [Suspect]
     Active Substance: METFORMIN HYDROCHLORIDE\VILDAGLIPTIN
     Indication: BLOOD GLUCOSE INCREASED
     Dosage: 1.5 DF (850/50 MG), 1 IN MORNING AND 1/2 AT NIGHT
     Route: 048
  2. TETRAC [Concomitant]
     Indication: PRODUCT USED FOR UNKNOWN INDICATION
     Route: 065
  3. LYRICA [Concomitant]
     Active Substance: PREGABALIN
     Indication: PRODUCT USED FOR UNKNOWN INDICATION
     Route: 065
  4. TAMSULOSIN [Concomitant]
     Active Substance: TAMSULOSIN
     Indication: PRODUCT USED FOR UNKNOWN INDICATION
     Dosage: 1 DF, QD STARTED APPROXIMATELY 2 YEARS AGO
     Route: 065
  5. JANUMET [Concomitant]
     Active Substance: METFORMIN HYDROCHLORIDE\SITAGLIPTIN PHOSPHATE
     Indication: PRODUCT USED FOR UNKNOWN INDICATION
     Route: 065
  6. CONTROLIP (FENOFIBRATE) [Concomitant]
     Indication: BLOOD CHOLESTEROL ABNORMAL
     Dosage: 1 DF, QD STARTED APPROXIMATELY 3 YEARS AGO
     Route: 065
  7. ASPIRIN PROTECT [Concomitant]
     Active Substance: ASPIRIN
     Indication: PROPHYLAXIS
     Dosage: 1 DF, QD
     Route: 065
  8. VESICARE [Concomitant]
     Active Substance: SOLIFENACIN SUCCINATE
     Indication: URINARY TRACT DISORDER
     Dosage: 1 DF, QD (APPROXIMATELY A YEAR AGO)
     Route: 065
  9. GASTROPRAZOL [Concomitant]
     Indication: GASTRITIS
     Dosage: 1 DF, QD (ON AN EMPTY STOMACH)
     Route: 065
  10. CALUTOL [Concomitant]
     Active Substance: BICALUTAMIDE
     Indication: PRODUCT USED FOR UNKNOWN INDICATION
     Route: 065

REACTIONS (4)
  - Drug prescribing error [Unknown]
  - Wrong technique in product usage process [Not Recovered/Not Resolved]
  - Prostate cancer [Unknown]
  - Nausea [Recovering/Resolving]
